FAERS Safety Report 9278768 (Version 1)
Quarter: 2013Q2

REPORT INFORMATION
  Report Type: Spontaneous
  Country: BD (occurrence: None)
  Receive Date: 20130501
  Receipt Date: 20130501
  Transmission Date: 20140414
  Serious: Yes (Hospitalization, Other)
  Sender: FDA-Public Use
  Company Number: 2013P1004929

PATIENT
  Age: 0 Day
  Sex: Male

DRUGS (1)
  1. CEFUROXIME [Suspect]
     Indication: URINARY TRACT INFECTION
     Route: 064

REACTIONS (7)
  - Drug eruption [None]
  - Maternal drugs affecting foetus [None]
  - Blister [None]
  - Diarrhoea [None]
  - Drug administration error [None]
  - Restlessness [None]
  - Hypersensitivity [None]
